FAERS Safety Report 10312695 (Version 1)
Quarter: 2014Q3

REPORT INFORMATION
  Report Type: Spontaneous
  Country: FR (occurrence: FR)
  Receive Date: 20140718
  Receipt Date: 20140718
  Transmission Date: 20150326
  Serious: Yes (Other)
  Sender: FDA-Public Use
  Company Number: PHHY2014FR086770

PATIENT
  Age: 78 Year
  Sex: Female

DRUGS (1)
  1. ZOMETA [Suspect]
     Active Substance: ZOLEDRONIC ACID
     Indication: PLASMA CELL MYELOMA
     Dosage: UNK, ONE INFUSION MONTHLY
     Dates: start: 2010, end: 2013

REACTIONS (3)
  - Osteonecrosis of jaw [Unknown]
  - Gingival injury [Unknown]
  - Pain in jaw [Unknown]
